FAERS Safety Report 10951886 (Version 4)
Quarter: 2016Q1

REPORT INFORMATION
  Report Type: Report from Study
  Country: US (occurrence: US)
  Receive Date: 20150325
  Receipt Date: 20160314
  Transmission Date: 20160525
  Serious: Yes (Other)
  Sender: FDA-Public Use
  Company Number: US-AMGEN-USASL2015026646

PATIENT
  Age: 60 Year
  Sex: Female

DRUGS (2)
  1. METHOTREXATE [Suspect]
     Active Substance: METHOTREXATE
     Indication: PRODUCT USED FOR UNKNOWN INDICATION
     Dosage: UNK
     Route: 065
  2. ENBREL [Suspect]
     Active Substance: ETANERCEPT
     Indication: RHEUMATOID ARTHRITIS
     Dosage: 50 MG, QWK
     Route: 058

REACTIONS (10)
  - Injection site haemorrhage [Unknown]
  - Inappropriate schedule of drug administration [Unknown]
  - Sinusitis [Unknown]
  - Respiratory tract infection [Unknown]
  - Condition aggravated [Unknown]
  - Stress fracture [Not Recovered/Not Resolved]
  - Intentional product misuse [Unknown]
  - Arthralgia [Unknown]
  - Injection site pain [Unknown]
  - Pneumothorax [Unknown]
